FAERS Safety Report 20813450 (Version 1)
Quarter: 2022Q2

REPORT INFORMATION
  Report Type: Spontaneous
  Country: US (occurrence: US)
  Receive Date: 20220511
  Receipt Date: 20220511
  Transmission Date: 20220721
  Serious: Yes (Other)
  Sender: FDA-Public Use
  Company Number: US-MYLANLABS-2022M1033252

PATIENT
  Age: 57 Year
  Sex: Male

DRUGS (7)
  1. FLUOROURACIL [Suspect]
     Active Substance: FLUOROURACIL
     Indication: Rectal cancer stage III
     Dosage: UNK, CYCLE (ADJUVANT FOLFOX, PLANNED FOR 8 CYCLES)
     Route: 065
  2. OXALIPLATIN [Suspect]
     Active Substance: OXALIPLATIN
     Indication: Rectal cancer stage III
     Dosage: 85 MILLIGRAM/SQ. METER, CYCLE (ADJUVANT FOLFOX, PLANNED FOR 8 CYCLES)
     Route: 065
  3. CAPECITABINE [Suspect]
     Active Substance: CAPECITABINE
     Indication: Rectal cancer stage III
     Dosage: 825 MILLIGRAM/SQ. METER, BID
     Route: 065
  4. LEUCOVORIN [Suspect]
     Active Substance: LEUCOVORIN
     Indication: Rectal cancer stage III
     Dosage: UNK UNK, CYCLE (ADJUVANT FOLFOX, PLANNED FOR 8 CYCLES)
     Route: 065
  5. GABAPENTIN [Concomitant]
     Active Substance: GABAPENTIN
     Indication: Peripheral sensorimotor neuropathy
     Dosage: 300 MILLIGRAM, QD (STARTING DOSES OF 300 MG NIGHTLY)
     Route: 065
  6. OXYCODONE [Concomitant]
     Active Substance: OXYCODONE
     Indication: Peripheral sensorimotor neuropathy
     Dosage: 5 MILLIGRAM, Q4H (5 MG EVERY 4 HOURS AS NEEDED)
     Route: 065
  7. DULOXETINE [Concomitant]
     Active Substance: DULOXETINE
     Indication: Peripheral sensorimotor neuropathy
     Dosage: 30 MILLIGRAM, BID (DULOXETINE WAS TRIED FOR 1 MONTH)
     Route: 065

REACTIONS (12)
  - Recall phenomenon [Recovering/Resolving]
  - Myositis [Recovering/Resolving]
  - Mobility decreased [Recovering/Resolving]
  - Deep vein thrombosis [Recovering/Resolving]
  - Oedema peripheral [Recovering/Resolving]
  - Hypoaesthesia [Recovering/Resolving]
  - Gait disturbance [Recovering/Resolving]
  - Fall [Recovered/Resolved]
  - Muscular weakness [Recovering/Resolving]
  - Balance disorder [Recovering/Resolving]
  - Lumbar radiculopathy [Recovering/Resolving]
  - Peripheral sensorimotor neuropathy [Recovering/Resolving]
